FAERS Safety Report 8320526-8 (Version None)
Quarter: 2012Q2

REPORT INFORMATION
  Report Type: 
  Country: None (occurrence: None)
  Receive Date: 20120430
  Receipt Date: 20120424
  Transmission Date: 20120825
  Serious: Yes (Life-Threatening, Hospitalization)
  Sender: FDA-Public Use
  Company Number: US-PFIZER INC-2012046065

PATIENT
  Sex: Female
  Weight: 51.701 kg

DRUGS (7)
  1. EFFEXOR XR [Concomitant]
     Indication: BIPOLAR DISORDER
     Dosage: 75 MG, 1X/DAY (37.5MG TWO CAPSULES AT BEDTIME)
  2. EFFEXOR [Concomitant]
     Indication: ANXIETY
     Dosage: 25 BID 37.5 1X DAILY
  3. DOXEPIN [Concomitant]
     Indication: ANXIETY
     Dosage: 25 MG, 2HS
  4. AMOXICILLIN [Concomitant]
     Indication: PAEDIATRIC AUTOIMMUNE NEUROPSYCHIATRIC DISORDERS ASSOCIATED WITH STREPTOCOCCAL INFECTION
     Dosage: 500, QD
  5. LAMICTAL [Concomitant]
     Indication: ANXIETY
     Dosage: 25 , 2X/DAY, 37.51 DAILY
  6. XANAX [Suspect]
     Indication: BIPOLAR DISORDER
     Dosage: UNK,2AM, 1 NOON, 1 SUPER, 1-2HS
     Route: 048
     Dates: start: 20120116, end: 20120120
  7. ALPRAZOLAM [Suspect]
     Indication: ANXIETY
     Dosage: 0.25 MG, 6X/DAY
     Route: 048
     Dates: start: 20120112, end: 20120114

REACTIONS (4)
  - APPARENT DEATH [None]
  - MALAISE [None]
  - CONVERSION DISORDER [None]
  - CONVULSION [None]
